FAERS Safety Report 5197109-4 (Version None)
Quarter: 2006Q4

REPORT INFORMATION
  Report Type: 
  Country: None (occurrence: None)
  Receive Date: 20061227
  Receipt Date: 20061212
  Transmission Date: 20070319
  Serious: Yes (Other)
  Sender: FDA-Public Use
  Company Number: 2006152832

PATIENT
  Age: 68 Year
  Sex: Female

DRUGS (1)
  1. ZITHROMAX [Suspect]
     Indication: RESPIRATORY TRACT INFECTION
     Dosage: 500 MG, ORAL
     Route: 048
     Dates: start: 20061101, end: 20061101

REACTIONS (2)
  - AGEUSIA [None]
  - ANOSMIA [None]
